FAERS Safety Report 8380957-7 (Version None)
Quarter: 2012Q2

REPORT INFORMATION
  Report Type: 
  Country: None (occurrence: None)
  Receive Date: 20120523
  Receipt Date: 20120515
  Transmission Date: 20120825
  Serious: No
  Sender: FDA-Public Use
  Company Number: HK-BRISTOL-MYERS SQUIBB COMPANY-16540346

PATIENT
  Age: 42 Year
  Sex: Male

DRUGS (1)
  1. BARACLUDE [Suspect]
     Indication: HEPATITIS B VIRUS TEST
     Dosage: ON AUG 2010: 0.5MG
     Route: 048
     Dates: start: 20080101

REACTIONS (1)
  - HYPOAESTHESIA [None]
